FAERS Safety Report 11371532 (Version 2)
Quarter: 2015Q3

REPORT INFORMATION
  Report Type: Spontaneous
  Country: US (occurrence: US)
  Receive Date: 20150812
  Receipt Date: 20150904
  Transmission Date: 20151125
  Serious: Yes (Death)
  Sender: FDA-Public Use
  Company Number: US-UCBSA-2015025176

PATIENT
  Age: 67 Year
  Sex: Female
  Weight: 47.37 kg

DRUGS (1)
  1. CIMZIA [Suspect]
     Active Substance: CERTOLIZUMAB PEGOL
     Indication: CROHN^S DISEASE
     Dosage: 200 MG, EV 4 WEEKS
     Route: 058
     Dates: start: 20150618, end: 20150802

REACTIONS (1)
  - Death [Fatal]

NARRATIVE: CASE EVENT DATE: 20150803
